FAERS Safety Report 6013734-2 (Version None)
Quarter: 2008Q4

REPORT INFORMATION
  Report Type: 
  Country: None (occurrence: None)
  Receive Date: 20081219
  Receipt Date: 20081209
  Transmission Date: 20090506
  Serious: Yes (Other)
  Sender: FDA-Public Use
  Company Number: B0538495A

PATIENT
  Age: 29 Year
  Sex: Female
  Weight: 50 kg

DRUGS (2)
  1. ZOPHREN [Suspect]
     Indication: VOMITING IN PREGNANCY
     Dosage: 3AMP PER DAY
     Route: 042
     Dates: start: 20080920, end: 20080922
  2. VOGALENE [Concomitant]
     Indication: VOMITING IN PREGNANCY
     Route: 042
     Dates: start: 20080919, end: 20080925

REACTIONS (2)
  - ABORTION INDUCED [None]
  - DRUG EXPOSURE DURING PREGNANCY [None]
